FAERS Safety Report 8785846 (Version 2)
Quarter: 2013Q2

REPORT INFORMATION
  Report Type: Spontaneous
  Country: US (occurrence: US)
  Receive Date: 20120914
  Receipt Date: 20130628
  Transmission Date: 20140414
  Serious: Yes (Other)
  Sender: FDA-Public Use
  Company Number: US-BAYER-2012-095579

PATIENT
  Age: 67 Year
  Sex: Female
  Weight: 100 kg

DRUGS (6)
  1. ALEVE CAPLET/TABLET,MIDOL EXTENDED RELIEF CAPLET [Suspect]
     Indication: BACK PAIN
     Dosage: 2 DF, PRN
     Route: 048
     Dates: start: 1999
  2. LIPITOR [Concomitant]
  3. CARVEDILOL [Concomitant]
  4. LOSARTAN [Concomitant]
  5. JANUMET [Concomitant]
  6. ASPIRIN [Concomitant]

REACTIONS (2)
  - Aspartate aminotransferase increased [None]
  - Alanine aminotransferase increased [None]
